FAERS Safety Report 5089927-8 (Version None)
Quarter: 2006Q3

REPORT INFORMATION
  Report Type: 
  Country: None (occurrence: None)
  Receive Date: 20060823
  Receipt Date: 20060807
  Transmission Date: 20061208
  Serious: Yes (Hospitalization, Other)
  Sender: FDA-Public Use
  Company Number: US200607004833

PATIENT
  Age: 79 Year
  Sex: Female
  Weight: 59 kg

DRUGS (12)
  1. EVISTA [Suspect]
     Indication: OSTEOPOROSIS
     Dosage: 60 MG, DAILY (1/D), ORAL
     Route: 048
     Dates: start: 20020524, end: 20060721
  2. PLAVIX [Concomitant]
  3. SYNTHROID [Concomitant]
  4. GLUCOTROL [Concomitant]
  5. ASPIRIN [Concomitant]
  6. LANOXIN [Concomitant]
  7. PRINIVIL [Concomitant]
  8. LOPRESSOR [Concomitant]
  9. LIPITOR [Concomitant]
  10. POTASSIUM CHLORIDE [Concomitant]
  11. DEMADEX [Concomitant]
  12. NASACORT [Concomitant]

REACTIONS (4)
  - CEREBRAL INFARCTION [None]
  - CEREBROVASCULAR ACCIDENT [None]
  - DYSARTHRIA [None]
  - HEMIPARESIS [None]
